FAERS Safety Report 15091262 (Version 1)
Quarter: 2018Q2

REPORT INFORMATION
  Report Type: Spontaneous
  Country: US (occurrence: US)
  Receive Date: 20180629
  Receipt Date: 20180629
  Transmission Date: 20180711
  Serious: Yes (Other)
  Sender: FDA-Public Use
  Company Number: US-TEVA-2018-US-915667

PATIENT
  Sex: Female

DRUGS (2)
  1. LORAZEPAM. [Suspect]
     Active Substance: LORAZEPAM
  2. LORAZEPAM. [Suspect]
     Active Substance: LORAZEPAM
     Indication: ANXIETY
     Dates: start: 2007

REACTIONS (15)
  - Seizure [Unknown]
  - Dry mouth [Unknown]
  - Nightmare [Unknown]
  - Drug ineffective [Unknown]
  - Delusion [Unknown]
  - Pharyngitis streptococcal [Unknown]
  - Muscle spasms [Unknown]
  - Abdominal discomfort [Unknown]
  - Asthenia [Unknown]
  - Blood blister [Unknown]
  - Stress [Unknown]
  - Scratch [Unknown]
  - Migraine [Unknown]
  - Memory impairment [Unknown]
  - Irritable bowel syndrome [Unknown]
